FAERS Safety Report 18247823 (Version 3)
Quarter: 2020Q4

REPORT INFORMATION
  Report Type: Report from Study
  Country: JP (occurrence: JP)
  Receive Date: 20200909
  Receipt Date: 20201013
  Transmission Date: 20210113
  Serious: Yes (Other)
  Sender: FDA-Public Use
  Company Number: JP-PFIZER INC-2020345753

PATIENT
  Age: 59 Year
  Sex: Male

DRUGS (2)
  1. BRAFTOVI [Suspect]
     Active Substance: ENCORAFENIB
     Indication: MALIGNANT MELANOMA
     Dosage: 450 MG, DAILY (EVERYDAY)
     Route: 048
     Dates: start: 20200825, end: 20200826
  2. MEKTOVI [Suspect]
     Active Substance: BINIMETINIB
     Indication: MALIGNANT MELANOMA
     Dosage: 90 MG, DAILY (EVERYDAY)
     Route: 048
     Dates: start: 20200825, end: 20200826

REACTIONS (1)
  - Serous retinopathy [Recovering/Resolving]

NARRATIVE: CASE EVENT DATE: 20200826
